FAERS Safety Report 6816357-8 (Version None)
Quarter: 2010Q3

REPORT INFORMATION
  Report Type: 
  Country: None (occurrence: None)
  Receive Date: 20100705
  Receipt Date: 20100622
  Transmission Date: 20110219
  Serious: Yes (Other)
  Sender: FDA-Public Use
  Company Number: PHHY2010US41173

PATIENT
  Sex: Female

DRUGS (1)
  1. VALTURNA [Suspect]
     Dosage: UNK
     Route: 048

REACTIONS (5)
  - BLOOD PRESSURE DECREASED [None]
  - CEREBROVASCULAR ACCIDENT [None]
  - EYE OPERATION [None]
  - HEART RATE DECREASED [None]
  - VISUAL IMPAIRMENT [None]
